FAERS Safety Report 15115223 (Version 1)
Quarter: 2018Q3

REPORT INFORMATION
  Report Type: Spontaneous
  Country: US (occurrence: US)
  Receive Date: 20180706
  Receipt Date: 20180706
  Transmission Date: 20181010
  Serious: No
  Sender: FDA-Public Use
  Company Number: US-ALLERGAN-1822738US

PATIENT
  Sex: Male

DRUGS (4)
  1. VRAYLAR [Suspect]
     Active Substance: CARIPRAZINE
     Indication: HALLUCINATION, AUDITORY
     Dosage: 3 MG, UNKNOWN
     Route: 065
     Dates: start: 201712, end: 20180409
  2. ZYPREXA [Suspect]
     Active Substance: OLANZAPINE
     Indication: SCHIZOPHRENIA
     Dosage: 1.5 MG, UNK
     Route: 065
  3. VRAYLAR [Suspect]
     Active Substance: CARIPRAZINE
     Indication: SCHIZOPHRENIA
     Dosage: 1.5 MG, UNKNOWN
     Route: 065
  4. ZYPREXA [Suspect]
     Active Substance: OLANZAPINE
     Dosage: 3 MG, QOD
     Route: 065
     Dates: start: 201712, end: 20180409

REACTIONS (4)
  - Catatonia [Not Recovered/Not Resolved]
  - Incontinence [Recovering/Resolving]
  - Off label use [Unknown]
  - Drug prescribing error [Unknown]
